FAERS Safety Report 8250024-1 (Version None)
Quarter: 2012Q2

REPORT INFORMATION
  Report Type: 
  Country: None (occurrence: None)
  Receive Date: 20120402
  Receipt Date: 20120323
  Transmission Date: 20120825
  Serious: No
  Sender: FDA-Public Use
  Company Number: MX-ELI_LILLY_AND_COMPANY-MX201202006703

PATIENT
  Age: 75 Year
  Sex: Female
  Weight: 60 kg

DRUGS (2)
  1. FORTEO [Suspect]
     Indication: OSTEOPENIA
     Dosage: 20 UG, QD
     Route: 058
     Dates: start: 20110101
  2. EVISTA [Suspect]
     Indication: OSTEOPENIA

REACTIONS (1)
  - OFF LABEL USE [None]
